FAERS Safety Report 25828654 (Version 2)
Quarter: 2025Q4

REPORT INFORMATION
  Report Type: Spontaneous
  Country: JP (occurrence: JP)
  Receive Date: 20250922
  Receipt Date: 20251002
  Transmission Date: 20260117
  Serious: Yes (Death)
  Sender: GENMAB
  Company Number: JP-GENMAB-2025-02817

PATIENT
  Age: 81 Year
  Sex: Female

DRUGS (1)
  1. EPKINLY [Suspect]
     Active Substance: EPCORITAMAB-BYSP
     Indication: Diffuse large B-cell lymphoma refractory
     Dosage: UNK, ADMINISTERED UP TO CYCLE 4
     Route: 065

REACTIONS (1)
  - Haemoptysis [Fatal]
